FAERS Safety Report 15192979 (Version 1)
Quarter: 2018Q3

REPORT INFORMATION
  Report Type: Spontaneous
  Country: US (occurrence: US)
  Receive Date: 20180725
  Receipt Date: 20180725
  Transmission Date: 20181010
  Serious: No
  Sender: FDA-Public Use
  Company Number: US-AUROBINDO-AUR-APU-2017-39594

PATIENT
  Age: 69 Year
  Sex: Female
  Weight: 84 kg

DRUGS (2)
  1. SULFAMETHOXAZOLE / TRIMETHOPRIM ORAL SUSPENSION USP 200/40MG PER 5ML [Suspect]
     Active Substance: SULFAMETHOXAZOLE\TRIMETHOPRIM
     Dosage: 15 ML, TWO TIMES A DAY
     Route: 048
     Dates: start: 20170815, end: 20170823
  2. SULFAMETHOXAZOLE / TRIMETHOPRIM ORAL SUSPENSION USP 200/40MG PER 5ML [Suspect]
     Active Substance: SULFAMETHOXAZOLE\TRIMETHOPRIM
     Indication: CELLULITIS
     Dosage: 10 ML, TWO TIMES A DAY
     Route: 048

REACTIONS (5)
  - Abdominal distension [Not Recovered/Not Resolved]
  - Nausea [Not Recovered/Not Resolved]
  - Functional gastrointestinal disorder [Not Recovered/Not Resolved]
  - Skin disorder [Not Recovered/Not Resolved]
  - Abdominal discomfort [Not Recovered/Not Resolved]

NARRATIVE: CASE EVENT DATE: 20170819
